FAERS Safety Report 9830253 (Version 2)
Quarter: 2014Q1

REPORT INFORMATION
  Report Type: Report from Study
  Country: CO (occurrence: CO)
  Receive Date: 20140120
  Receipt Date: 20140131
  Transmission Date: 20141002
  Serious: Yes (Death, Hospitalization, Other)
  Sender: FDA-Public Use
  Company Number: CO-ASTRAZENECA-2014SE03886

PATIENT
  Age: 84 Year
  Sex: Female

DRUGS (2)
  1. BRILINTA [Suspect]
     Indication: INFARCTION
     Route: 048
     Dates: start: 20130820, end: 20130930
  2. ASA [Concomitant]

REACTIONS (3)
  - Death [Fatal]
  - Post procedural haemorrhage [Unknown]
  - Gastrointestinal haemorrhage [Unknown]
